FAERS Safety Report 7878260-4 (Version None)
Quarter: 2011Q4

REPORT INFORMATION
  Report Type: 
  Country: None (occurrence: None)
  Receive Date: 20111031
  Receipt Date: 20111018
  Transmission Date: 20120403
  Serious: Yes (Death, Hospitalization)
  Sender: FDA-Public Use
  Company Number: DSA_47895_2011

PATIENT
  Age: 53 Year
  Sex: Male

DRUGS (2)
  1. DILTIAZEM HCL [Suspect]
     Indication: PRODUCT USED FOR UNKNOWN INDICATION
     Dosage: 0NE-MONTH SUPPLY TAKEN AT ONCE; NOT THE PRESCRIBED AMOUNT
  2. PROPRANOLOL [Suspect]
     Indication: PRODUCT USED FOR UNKNOWN INDICATION
     Dosage: ONE-MONTH SUPPLY TAKEN AT ONCE; NOT THE PRESCRIBED AMOUNT

REACTIONS (4)
  - CARDIAC ARREST [None]
  - BRADYCARDIA [None]
  - HYPOTENSION [None]
  - MULTI-ORGAN FAILURE [None]
